FAERS Safety Report 6444493-7 (Version None)
Quarter: 2009Q4

REPORT INFORMATION
  Report Type: 
  Country: None (occurrence: None)
  Receive Date: 20091118
  Receipt Date: 20091113
  Transmission Date: 20100525
  Serious: Yes (Hospitalization, Other)
  Sender: FDA-Public Use
  Company Number: DE-BAYER-200937505GPV

PATIENT
  Age: 66 Year
  Sex: Male
  Weight: 71 kg

DRUGS (14)
  1. NEXAVAR [Suspect]
     Indication: RENAL CELL CARCINOMA
     Dosage: TOTAL DAILY DOSE: 800 MG
     Route: 048
     Dates: start: 20070508, end: 20071008
  2. FENTANYL-100 [Concomitant]
     Dates: start: 20070412
  3. NOVAMINSULFON [Concomitant]
     Dates: start: 20070412
  4. L-THYROXIN [Concomitant]
  5. LACTULOSE [Concomitant]
  6. AMITRIPTYLINE HCL [Concomitant]
     Dates: start: 20070508
  7. RAMIPRIL [Concomitant]
  8. SPIRIVA [Concomitant]
  9. FORMOTOP [Concomitant]
  10. PREDNISON [Concomitant]
     Dates: start: 20070508
  11. HALOPERIDOL [Concomitant]
     Dates: start: 20070611
  12. VERGENTAN [Concomitant]
     Route: 042
     Dates: start: 20070611, end: 20070803
  13. DEXAMETHASONE [Concomitant]
     Route: 042
     Dates: start: 20070611, end: 20070803
  14. MULTIBIONTA [Concomitant]
     Route: 042
     Dates: start: 20070611, end: 20070803

REACTIONS (2)
  - PANIC ATTACK [None]
  - RENAL CELL CARCINOMA [None]
